FAERS Safety Report 7588158-7 (Version None)
Quarter: 2011Q3

REPORT INFORMATION
  Report Type: 
  Country: None (occurrence: None)
  Receive Date: 20110705
  Receipt Date: 20110610
  Transmission Date: 20111222
  Serious: Yes (Hospitalization, Other)
  Sender: FDA-Public Use
  Company Number: US-BAYER-201028493NA

PATIENT
  Age: 25 Year
  Sex: Female
  Weight: 143 kg

DRUGS (5)
  1. OMEPRAZOLE [Concomitant]
     Dosage: UNK
     Dates: start: 20100512
  2. YASMIN [Suspect]
     Indication: PRODUCT USED FOR UNKNOWN INDICATION
  3. ACETAMINOPHEN AND OXYCODONE HCL [Concomitant]
     Indication: PAIN
     Dosage: UNK
     Dates: start: 20100512
  4. YAZ [Suspect]
     Indication: PRODUCT USED FOR UNKNOWN INDICATION
     Dosage: UNK UNK, QD
     Route: 048
     Dates: start: 20091210, end: 20100512
  5. ANTIBIOTICS [Concomitant]
     Dosage: UNK UNK, PRN
     Dates: end: 19990101

REACTIONS (6)
  - CHOLECYSTITIS CHRONIC [None]
  - CHOLESTEROSIS [None]
  - CHOLELITHIASIS [None]
  - BILIARY DYSKINESIA [None]
  - CHOLECYSTECTOMY [None]
  - PAIN [None]
